FAERS Safety Report 5485592-6 (Version None)
Quarter: 2007Q4

REPORT INFORMATION
  Report Type: 
  Country: None (occurrence: None)
  Receive Date: 20071011
  Receipt Date: 20071011
  Transmission Date: 20080405
  Serious: Yes (Life-Threatening)
  Sender: FDA-Public Use
  Company Number: None

PATIENT
  Sex: Female
  Weight: 50 kg

DRUGS (3)
  1. FLUDARABINE PHOSPHATE [Suspect]
     Indication: HODGKIN'S DISEASE
     Dosage: 39MG DAILY IV
     Route: 042
     Dates: start: 20070917, end: 20070921
  2. MELPAHLAN [Suspect]
     Dosage: MELPHALAN  TIMES ONE  IV
     Route: 042
     Dates: start: 20070921, end: 20070921
  3. ATGAM [Concomitant]

REACTIONS (11)
  - BLOOD BILIRUBIN INCREASED [None]
  - BLOOD CULTURE POSITIVE [None]
  - CHEST X-RAY ABNORMAL [None]
  - DUODENITIS HAEMORRHAGIC [None]
  - HAEMATOCHEZIA [None]
  - HAEMOGLOBIN DECREASED [None]
  - MEDIASTINAL DISORDER [None]
  - RESPIRATORY DISORDER [None]
  - STREPTOCOCCAL INFECTION [None]
  - TACHYCARDIA [None]
  - TACHYPNOEA [None]
